FAERS Safety Report 22132238 (Version 1)
Quarter: 2023Q1

REPORT INFORMATION
  Report Type: Spontaneous
  Country: US (occurrence: US)
  Receive Date: 20230323
  Receipt Date: 20230323
  Transmission Date: 20230418
  Serious: No
  Sender: FDA-Public Use
  Company Number: US-BRISTOL-MYERS SQUIBB COMPANY-2023-041801

PATIENT
  Age: 64 Year
  Sex: Male

DRUGS (1)
  1. ORENCIA [Suspect]
     Active Substance: ABATACEPT
     Indication: Rheumatoid arthritis
     Route: 058
     Dates: start: 202302

REACTIONS (6)
  - Drug ineffective [Unknown]
  - Lacrimation increased [Unknown]
  - Nasal congestion [Unknown]
  - Rhinitis [Unknown]
  - Cough [Unknown]
  - Oropharyngeal discomfort [Unknown]
